FAERS Safety Report 23825661 (Version 4)
Quarter: 2024Q2

REPORT INFORMATION
  Report Type: Spontaneous
  Country: CA (occurrence: CA)
  Receive Date: 20240507
  Receipt Date: 20240628
  Transmission Date: 20240716
  Serious: Yes (Other)
  Sender: FDA-Public Use
  Company Number: CA-PFIZER INC-202201195514

PATIENT
  Age: 41 Year
  Sex: Female
  Weight: 65 kg

DRUGS (15)
  1. ABRILADA [Suspect]
     Active Substance: ADALIMUMAB-AFZB
     Indication: Colitis ulcerative
     Dosage: 160 MG, INDUCTION 160 MG W 0, 80 MG W 2 THEN 40 MG EVERY 2 WEEKS
     Route: 058
     Dates: start: 20220927
  2. ABRILADA [Suspect]
     Active Substance: ADALIMUMAB-AFZB
     Dosage: 40 MG, EVERY 2 WEEK, INDUCTION 160 MG W0, 80 MG W2 THEN 40 MG EVERY 2 WEEKS - PREFILLED PEN
     Route: 058
     Dates: start: 20220927, end: 2023
  3. ABRILADA [Suspect]
     Active Substance: ADALIMUMAB-AFZB
     Dosage: 40 MG, EVERY 2 WEEKS, INDUCTION 160 MG W0, 80 MG W2 THEN 40 MG EVERY 2 WEEKS
     Route: 058
     Dates: start: 20221011
  4. ABRILADA [Suspect]
     Active Substance: ADALIMUMAB-AFZB
     Dosage: 40 MG, EVERY 2 WEEKS, INDUCTION 160 MG W0, 80 MG W2 THEN 40 MG EVERY 2 WEEKS
     Route: 058
     Dates: start: 20221025
  5. ABRILADA [Suspect]
     Active Substance: ADALIMUMAB-AFZB
     Dosage: 40 MG, EVERY 2 WEEKS, INDUCTION 160 MG W0, 80 MG W2 THEN 40 MG EVERY 2 WEEKS
     Route: 058
     Dates: start: 20221220
  6. ABRILADA [Suspect]
     Active Substance: ADALIMUMAB-AFZB
     Dosage: 40 MG EVERY 10 DAYS
     Route: 058
     Dates: start: 2023, end: 202310
  7. ABRILADA [Suspect]
     Active Substance: ADALIMUMAB-AFZB
     Dosage: 40 MG, WEEKLY
     Route: 058
     Dates: start: 202310, end: 20240527
  8. COLACE [Concomitant]
     Active Substance: DOCUSATE SODIUM
     Dosage: 1 DF
     Route: 065
  9. HYDROCORTISONE [Concomitant]
     Active Substance: HYDROCORTISONE\HYDROCORTISONE ACETATE
     Dosage: 1 DF, DOSAGE UNKNOWN
     Route: 065
  10. HYDROCORTISONE [Concomitant]
     Active Substance: HYDROCORTISONE\HYDROCORTISONE ACETATE
     Dosage: 1 DF, DOSAGE UNKNOWN
     Route: 065
     Dates: end: 20221101
  11. DILAUDID [Concomitant]
     Active Substance: HYDROMORPHONE HYDROCHLORIDE
     Dosage: 1 DF
     Route: 065
  12. CEFIXIME [Concomitant]
     Active Substance: CEFIXIME
     Dosage: 1 DF, DAILY
  13. CEFIXIME [Concomitant]
     Active Substance: CEFIXIME
     Dosage: 1 DF, 1X/DAY
     Route: 065
  14. MESALAMINE [Concomitant]
     Active Substance: MESALAMINE
     Dosage: 1 DF
     Dates: end: 20221020
  15. SENOKOT [Concomitant]
     Active Substance: SENNOSIDES
     Dosage: 1 DF (DOSAGE FORM)
     Route: 065

REACTIONS (38)
  - Abdominal pain [Recovering/Resolving]
  - Back pain [Recovering/Resolving]
  - Intra-uterine contraceptive device removal [Unknown]
  - Therapeutic response shortened [Unknown]
  - Drug ineffective [Unknown]
  - Drug level decreased [Unknown]
  - Therapeutic response unexpected [Unknown]
  - Headache [Not Recovered/Not Resolved]
  - Skin warm [Recovering/Resolving]
  - Fatigue [Not Recovered/Not Resolved]
  - Crying [Recovering/Resolving]
  - Emotional disorder [Not Recovered/Not Resolved]
  - Skin burning sensation [Recovering/Resolving]
  - Flatulence [Recovering/Resolving]
  - Injection site pain [Recovered/Resolved]
  - Abdominal pain upper [Not Recovered/Not Resolved]
  - Constipation [Not Recovered/Not Resolved]
  - Abdominal distension [Not Recovered/Not Resolved]
  - Sinusitis [Not Recovered/Not Resolved]
  - Injection site bruising [Not Recovered/Not Resolved]
  - Injection site erythema [Not Recovered/Not Resolved]
  - Injection site hyperaesthesia [Not Recovered/Not Resolved]
  - Injection site pruritus [Not Recovered/Not Resolved]
  - Fall [Recovered/Resolved]
  - Abdominal pain upper [Recovered/Resolved]
  - Anorectal discomfort [Recovering/Resolving]
  - Nasopharyngitis [Not Recovered/Not Resolved]
  - Myalgia [Recovering/Resolving]
  - Pain in extremity [Recovering/Resolving]
  - Condition aggravated [Not Recovered/Not Resolved]
  - Stress [Not Recovered/Not Resolved]
  - Pain [Not Recovered/Not Resolved]
  - Myalgia [Not Recovered/Not Resolved]
  - Fatigue [Not Recovered/Not Resolved]
  - Oedema peripheral [Not Recovered/Not Resolved]
  - Haemorrhage [Unknown]
  - Haemoglobin decreased [Not Recovered/Not Resolved]
  - Off label use [Unknown]

NARRATIVE: CASE EVENT DATE: 20220101
